FAERS Safety Report 24116494 (Version 2)
Quarter: 2024Q3

REPORT INFORMATION
  Report Type: Spontaneous
  Country: US (occurrence: US)
  Receive Date: 20240722
  Receipt Date: 20240722
  Transmission Date: 20241017
  Serious: No
  Sender: ASTELLAS
  Company Number: US-ASTELLAS-2024US001226

PATIENT
  Age: 77 Year
  Sex: Female

DRUGS (2)
  1. MYRBETRIQ [Suspect]
     Active Substance: MIRABEGRON
     Indication: Product used for unknown indication
     Route: 065
     Dates: end: 20231231
  2. MYRBETRIQ [Suspect]
     Active Substance: MIRABEGRON
     Indication: Product used for unknown indication
     Route: 065
     Dates: start: 2017

REACTIONS (7)
  - Erythema [Unknown]
  - Burning sensation [Unknown]
  - Paraesthesia oral [Unknown]
  - Influenza like illness [Unknown]
  - Dizziness [Unknown]
  - Pruritus [Recovering/Resolving]
  - Rash [Recovering/Resolving]
